FAERS Safety Report 19322718 (Version 1)
Quarter: 2021Q2

REPORT INFORMATION
  Report Type: Spontaneous
  Country: CN (occurrence: CN)
  Receive Date: 20210527
  Receipt Date: 20210527
  Transmission Date: 20210717
  Serious: Yes (Disabling, Other)
  Sender: FDA-Public Use
  Company Number: CN-JIANGSU HENGRUI MEDICINE CO., LTD.-2112068

PATIENT
  Age: 62 Year
  Sex: Female

DRUGS (3)
  1. TEGAFUR, GIMERACIL, OTERACIL POTASSIUM [Suspect]
     Active Substance: GIMERACIL\OTERACIL\TEGAFUR
     Route: 048
     Dates: start: 20210318, end: 20210405
  2. GLUCOSE INJECTION [Concomitant]
     Active Substance: DEXTROSE
     Route: 041
     Dates: start: 20210318, end: 20210318
  3. OXALIPLATIN INJECTION USP, 5 MG/ML, PACKAGED IN 50 MG/10 ML AND 100 MG [Suspect]
     Active Substance: OXALIPLATIN
     Indication: GASTRIC CANCER
     Route: 041
     Dates: start: 20210318, end: 20210318

REACTIONS (2)
  - Drug-induced liver injury [Recovering/Resolving]
  - White blood cell count decreased [Recovering/Resolving]

NARRATIVE: CASE EVENT DATE: 20210407
